FAERS Safety Report 8217946-9 (Version None)
Quarter: 2012Q1

REPORT INFORMATION
  Report Type: 
  Country: None (occurrence: None)
  Receive Date: 20120319
  Receipt Date: 20120309
  Transmission Date: 20120608
  Serious: Yes (Other)
  Sender: FDA-Public Use
  Company Number: US-BAYER-2012-025423

PATIENT
  Sex: Female

DRUGS (1)
  1. YAZ [Suspect]
     Dosage: UNK

REACTIONS (6)
  - WEIGHT DECREASED [None]
  - WEIGHT INCREASED [None]
  - ACNE [None]
  - VOMITING [None]
  - GALLBLADDER NON-FUNCTIONING [None]
  - GASTRIC DISORDER [None]
